FAERS Safety Report 18842407 (Version 1)
Quarter: 2021Q1

REPORT INFORMATION
  Report Type: Spontaneous
  Country: US (occurrence: US)
  Receive Date: 20210203
  Receipt Date: 20210203
  Transmission Date: 20210419
  Serious: Yes (Life-Threatening)
  Sender: FDA-Public Use
  Company Number: None

PATIENT
  Age: 46 Year
  Sex: Female
  Weight: 86 kg

DRUGS (4)
  1. ENOXAPARIN 1MG/KG [Suspect]
     Active Substance: ENOXAPARIN
     Indication: PULMONARY EMBOLISM
     Route: 058
     Dates: start: 20210115, end: 20210125
  2. TENECTEPLASE 0.25MG/KG (21.65MG) [Suspect]
     Active Substance: TENECTEPLASE
     Indication: COVID-19 PNEUMONIA
     Dosage: ?          OTHER ROUTE:IV PUSH/BOLUS?
     Dates: start: 20210118, end: 20210118
  3. TENECTEPLASE 0.25MG/KG (21.65MG) [Suspect]
     Active Substance: TENECTEPLASE
     Indication: PULMONARY EMBOLISM
     Dosage: ?          OTHER ROUTE:IV PUSH/BOLUS?
     Dates: start: 20210118, end: 20210118
  4. ENOXAPARIN 1MG/KG [Suspect]
     Active Substance: ENOXAPARIN
     Indication: DEEP VEIN THROMBOSIS
     Route: 058
     Dates: start: 20210115, end: 20210125

REACTIONS (8)
  - Mouth haemorrhage [None]
  - COVID-19 [None]
  - Haemorrhoidal haemorrhage [None]
  - Haemodialysis [None]
  - Haemoglobin decreased [None]
  - Hypoxia [None]
  - Condition aggravated [None]
  - Packed red blood cell transfusion [None]

NARRATIVE: CASE EVENT DATE: 20210129
